FAERS Safety Report 23551189 (Version 2)
Quarter: 2024Q2

REPORT INFORMATION
  Report Type: Spontaneous
  Country: CA (occurrence: CA)
  Receive Date: 20240222
  Receipt Date: 20240603
  Transmission Date: 20240716
  Serious: Yes (Other)
  Sender: FDA-Public Use
  Company Number: CA-PADAGIS-2024PAD00254

PATIENT

DRUGS (2)
  1. TESTOSTERONE CYPIONATE [Suspect]
     Active Substance: TESTOSTERONE CYPIONATE
     Indication: Gender reassignment therapy
     Dosage: UNK
     Route: 065
  2. TESTOSTERONE CYPIONATE [Suspect]
     Active Substance: TESTOSTERONE CYPIONATE
     Dosage: 100 MG, WEEKLY
     Route: 058

REACTIONS (2)
  - Endometrial adenocarcinoma [None]
  - Product use in unapproved indication [Unknown]
